FAERS Safety Report 14978145 (Version 8)
Quarter: 2022Q3

REPORT INFORMATION
  Report Type: Report from Study
  Country: CN (occurrence: None)
  Receive Date: 20180606
  Receipt Date: 20220708
  Transmission Date: 20221026
  Serious: Yes (Hospitalization)
  Sender: FDA-Public Use
  Company Number: CN-ROCHE-2101391

PATIENT
  Age: 60 Year
  Sex: Female
  Weight: 65 kg

DRUGS (66)
  1. ATEZOLIZUMAB [Suspect]
     Active Substance: ATEZOLIZUMAB
     Indication: Ovarian cancer
     Dosage: DATE OF MOST RECENT DOSE OF ATEZOLIZUMAB PRIOR TO GRANULOCYTOSIS ONSET 23/MAY/2018.
     Route: 042
     Dates: start: 20180313
  2. BEVACIZUMAB [Suspect]
     Active Substance: BEVACIZUMAB
     Indication: Ovarian cancer
     Dosage: DATE OF MOST RECENT DOSE OF BEVACIZUMAB PRIOR TO GRANULOCYTOSIS ONSET 23/MAY/2018, 975 MG
     Route: 042
     Dates: start: 20180412
  3. PACLITAXEL [Suspect]
     Active Substance: PACLITAXEL
     Indication: Ovarian cancer
     Dosage: DATE OF MOST RECENT DOSE OF PACLITAXEL PRIOR TO GRANULOCYTOSIS ONSET 23/MAY/2018, 270 MG?DATE OF MOS
     Route: 042
     Dates: start: 20180313
  4. CARBOPLATIN [Suspect]
     Active Substance: CARBOPLATIN
     Indication: Ovarian cancer
     Dosage: DATE OF MOST RECENT DOSE OF CARBOPLATIN PRIOR TO GRANULOCYTOSIS ONSET 23/MAY/2018, 570 MG?DATE OF MO
     Route: 042
     Dates: start: 20180313
  5. BENZALKONIUM CHLORIDE [Concomitant]
     Active Substance: BENZALKONIUM CHLORIDE
     Dates: start: 20180305, end: 20180418
  6. UBENIMEX [Concomitant]
     Active Substance: UBENIMEX
     Dates: start: 20180305, end: 20180319
  7. ENTERAL NUTRITIONAL EMULSION (TP-HE) [Concomitant]
     Indication: Nutritional supplementation
     Dates: start: 20180305, end: 20180315
  8. ENTERAL NUTRITIONAL EMULSION (TP-HE) [Concomitant]
     Dates: end: 20180517
  9. ENTERAL NUTRITIONAL EMULSION (TP-HE) [Concomitant]
     Dates: start: 20180615, end: 20180620
  10. LIDOCAINE HYDROCHLORIDE [Concomitant]
     Active Substance: LIDOCAINE HYDROCHLORIDE
     Indication: Local anaesthesia
     Dates: start: 20180312, end: 20180312
  11. HEPARIN SODIUM [Concomitant]
     Active Substance: HEPARIN SODIUM
     Dates: start: 20180312, end: 20180312
  12. DEXAMETHASONE ACETATE [Concomitant]
     Active Substance: DEXAMETHASONE ACETATE
     Route: 048
     Dates: start: 20180312, end: 20180313
  13. DEXAMETHASONE ACETATE [Concomitant]
     Active Substance: DEXAMETHASONE ACETATE
     Dates: start: 20180522, end: 20180523
  14. PROMETHAZINE HYDROCHLORIDE [Concomitant]
     Active Substance: PROMETHAZINE HYDROCHLORIDE
     Dates: start: 20180313, end: 20180313
  15. PROMETHAZINE HYDROCHLORIDE [Concomitant]
     Active Substance: PROMETHAZINE HYDROCHLORIDE
     Dates: start: 20180523, end: 20180523
  16. METOCLOPRAMIDE DIHYDROCHLORIDE [Concomitant]
     Dates: start: 20180313, end: 20180313
  17. METOCLOPRAMIDE DIHYDROCHLORIDE [Concomitant]
     Dates: start: 20180512, end: 20180512
  18. METOCLOPRAMIDE DIHYDROCHLORIDE [Concomitant]
     Dates: start: 20180515, end: 20180515
  19. METOCLOPRAMIDE DIHYDROCHLORIDE [Concomitant]
     Dates: start: 20180516, end: 20180516
  20. METOCLOPRAMIDE DIHYDROCHLORIDE [Concomitant]
     Dates: start: 20180523, end: 20180523
  21. METOCLOPRAMIDE DIHYDROCHLORIDE [Concomitant]
     Dates: start: 20180601, end: 20180601
  22. METOCLOPRAMIDE DIHYDROCHLORIDE [Concomitant]
     Dates: start: 20180606, end: 20180606
  23. PALONOSETRON HYDROCHLORIDE [Concomitant]
     Active Substance: PALONOSETRON HYDROCHLORIDE
     Dates: start: 20180313, end: 20180313
  24. PALONOSETRON HYDROCHLORIDE [Concomitant]
     Active Substance: PALONOSETRON HYDROCHLORIDE
     Dates: start: 20180523, end: 20180523
  25. SODIUM CHLORIDE [Concomitant]
     Active Substance: SODIUM CHLORIDE
     Dates: start: 20180313, end: 20180313
  26. SODIUM CHLORIDE [Concomitant]
     Active Substance: SODIUM CHLORIDE
     Dates: start: 20180604, end: 20180615
  27. ADEMETIONINE [Concomitant]
     Active Substance: ADEMETIONINE
     Dates: start: 20180313, end: 20180313
  28. ADEMETIONINE [Concomitant]
     Active Substance: ADEMETIONINE
     Dates: start: 20180411, end: 20180412
  29. LANSOPRAZOLE [Concomitant]
     Active Substance: LANSOPRAZOLE
     Dates: start: 20180313, end: 20180408
  30. LANSOPRAZOLE [Concomitant]
     Active Substance: LANSOPRAZOLE
     Dates: start: 20180427, end: 20180524
  31. LANSOPRAZOLE [Concomitant]
     Active Substance: LANSOPRAZOLE
     Dates: start: 20180403, end: 20180408
  32. DEXAMETHASONE SODIUM PHOSPHATE [Concomitant]
     Active Substance: DEXAMETHASONE SODIUM PHOSPHATE
     Route: 042
     Dates: start: 20180401, end: 20180401
  33. DEXAMETHASONE SODIUM PHOSPHATE [Concomitant]
     Active Substance: DEXAMETHASONE SODIUM PHOSPHATE
     Route: 042
     Dates: start: 20180523, end: 20180523
  34. DEXAMETHASONE SODIUM PHOSPHATE [Concomitant]
     Active Substance: DEXAMETHASONE SODIUM PHOSPHATE
     Route: 042
     Dates: start: 20180605, end: 20180605
  35. ONDANSETRON HYDROCHLORIDE [Concomitant]
     Active Substance: ONDANSETRON HYDROCHLORIDE
     Dates: start: 20180313, end: 20180313
  36. ONDANSETRON HYDROCHLORIDE [Concomitant]
     Active Substance: ONDANSETRON HYDROCHLORIDE
     Dates: start: 20180516, end: 20180521
  37. ONDANSETRON HYDROCHLORIDE [Concomitant]
     Active Substance: ONDANSETRON HYDROCHLORIDE
     Dates: start: 20180602, end: 20180603
  38. ONDANSETRON HYDROCHLORIDE [Concomitant]
     Active Substance: ONDANSETRON HYDROCHLORIDE
     Dates: start: 20180607, end: 20180610
  39. DEXTROSE [Concomitant]
     Active Substance: DEXTROSE
     Dates: start: 20180313, end: 20180313
  40. DEXTROSE [Concomitant]
     Active Substance: DEXTROSE
     Dates: start: 20180411, end: 20180412
  41. DEXTROSE [Concomitant]
     Active Substance: DEXTROSE
     Dates: start: 20180517, end: 20180517
  42. DEXTROSE [Concomitant]
     Active Substance: DEXTROSE
     Dates: start: 20180523, end: 20180523
  43. DEXTROSE [Concomitant]
     Active Substance: DEXTROSE
     Dates: start: 20180518, end: 20180523
  44. DEXTROSE [Concomitant]
     Active Substance: DEXTROSE
     Dates: start: 20180403, end: 20180408
  45. MOSAPRIDE CITRATE [Concomitant]
     Active Substance: MOSAPRIDE CITRATE
     Dates: start: 20180517, end: 20180525
  46. MOSAPRIDE CITRATE [Concomitant]
     Active Substance: MOSAPRIDE CITRATE
     Dates: start: 20180604, end: 20180611
  47. MAGNESIUM ISOGLYCYRRHIZINATE [Concomitant]
     Active Substance: MAGNESIUM ISOGLYCYRRHIZINATE
     Dates: start: 20180427, end: 20180524
  48. INSULIN NOS [Concomitant]
     Active Substance: INSULIN NOS
     Dates: start: 20180427, end: 20180507
  49. INSULIN NOS [Concomitant]
     Active Substance: INSULIN NOS
     Dates: start: 20180508, end: 20180514
  50. INSULIN NOS [Concomitant]
     Active Substance: INSULIN NOS
     Dates: start: 20180515, end: 20180518
  51. INSULIN NOS [Concomitant]
     Active Substance: INSULIN NOS
     Dates: start: 20180518, end: 20180523
  52. INSULIN NOS [Concomitant]
     Active Substance: INSULIN NOS
     Dates: start: 20180604, end: 20180615
  53. POTASSIUM CHLORIDE [Concomitant]
     Active Substance: POTASSIUM CHLORIDE
     Dates: start: 20180427, end: 20180524
  54. POTASSIUM CHLORIDE [Concomitant]
     Active Substance: POTASSIUM CHLORIDE
     Dates: start: 20180601, end: 20180604
  55. POTASSIUM CHLORIDE [Concomitant]
     Active Substance: POTASSIUM CHLORIDE
     Dates: start: 20180604, end: 20180715
  56. AMINO ACIDS, SOURCE UNSPECIFIED [Concomitant]
     Active Substance: AMINO ACIDS, SOURCE UNSPECIFIED
     Dates: start: 20180518, end: 20180523
  57. OMEGAVEN [Concomitant]
     Active Substance: FISH OIL
     Dates: start: 20180518, end: 20180523
  58. PANTOPRAZOLE SODIUM [Concomitant]
     Active Substance: PANTOPRAZOLE SODIUM
     Dates: start: 20180529, end: 20180615
  59. ADEMETIONINE BUTANEDISULFONATE [Concomitant]
     Active Substance: ADEMETIONINE BUTANEDISULFONATE
     Dates: start: 20180529, end: 20180615
  60. IRON SUCROSE [Concomitant]
     Active Substance: IRON SUCROSE
     Indication: Anaemia
     Dates: start: 20180531, end: 20180615
  61. IMIPENEM AND CILASTATIN SODIUM [Concomitant]
     Active Substance: CILASTATIN SODIUM\IMIPENEM
     Dates: start: 20180607, end: 20180615
  62. INDOMETHACIN [Concomitant]
     Active Substance: INDOMETHACIN
     Dates: start: 20180605, end: 20180606
  63. INDOMETHACIN [Concomitant]
     Active Substance: INDOMETHACIN
     Dates: start: 20180530, end: 20180530
  64. NIFEREX [Concomitant]
     Indication: Anaemia
     Dates: start: 20180531, end: 20180604
  65. HUMAN RED BLOOD CELL [Concomitant]
     Active Substance: HUMAN RED BLOOD CELL
     Indication: Anaemia
     Dates: start: 20180605, end: 20180605
  66. MEGESTROL ACETATE [Concomitant]
     Active Substance: MEGESTROL ACETATE
     Dates: start: 20180611, end: 20180618

REACTIONS (2)
  - Granulocytosis [Recovered/Resolved]
  - Platelet count decreased [Recovered/Resolved]

NARRATIVE: CASE EVENT DATE: 20180320
